FAERS Safety Report 9276983 (Version 1)
Quarter: 2013Q2

REPORT INFORMATION
  Report Type: Spontaneous
  Country: US (occurrence: None)
  Receive Date: 20130501
  Receipt Date: 20130501
  Transmission Date: 20140414
  Serious: Yes (Other)
  Sender: FDA-Public Use
  Company Number: 2013P1005070

PATIENT
  Age: 55 Year
  Sex: Female

DRUGS (3)
  1. INFUMORPH [Suspect]
  2. KETAMINE [Suspect]
  3. TETRACAINE [Suspect]

REACTIONS (1)
  - Device occlusion [None]
